FAERS Safety Report 7481729-8 (Version None)
Quarter: 2011Q2

REPORT INFORMATION
  Report Type: 
  Country: None (occurrence: None)
  Receive Date: 20110516
  Receipt Date: 20110504
  Transmission Date: 20111010
  Serious: Yes (Other)
  Sender: FDA-Public Use
  Company Number: A0925689A

PATIENT
  Sex: Female
  Weight: 88.3 kg

DRUGS (8)
  1. VENTOLIN [Concomitant]
     Route: 065
  2. COZAAR [Concomitant]
     Indication: HYPERTENSION
     Dosage: 50MG PER DAY
     Route: 065
  3. NITRO-DUR [Concomitant]
     Dosage: .4U UNKNOWN
     Route: 065
  4. LIPITOR [Concomitant]
     Dosage: 40MG PER DAY
     Route: 065
  5. ADVAIR DISKUS 100/50 [Suspect]
     Indication: ASTHMA
     Dosage: 1PUFF THREE TIMES PER DAY
     Route: 055
     Dates: start: 20100101
  6. PANTOLOC [Concomitant]
     Dosage: 40MG PER DAY
     Route: 065
  7. TRAZODONE HCL [Concomitant]
     Dosage: 150MG AT NIGHT
     Route: 065
  8. EFFEXOR [Concomitant]
     Indication: DEPRESSION
     Dosage: 75MG PER DAY
     Route: 065

REACTIONS (9)
  - RHINORRHOEA [None]
  - MUSCULOSKELETAL CHEST PAIN [None]
  - PNEUMONIA [None]
  - ILL-DEFINED DISORDER [None]
  - INCREASED UPPER AIRWAY SECRETION [None]
  - PRODUCTIVE COUGH [None]
  - ASTHMA [None]
  - LACRIMATION INCREASED [None]
  - BRONCHITIS [None]
